FAERS Safety Report 16756428 (Version 1)
Quarter: 2019Q3

REPORT INFORMATION
  Report Type: Spontaneous
  Country: NO (occurrence: NO)
  Receive Date: 20190829
  Receipt Date: 20190829
  Transmission Date: 20191005
  Serious: Yes (Other)
  Sender: FDA-Public Use
  Company Number: NO-MYLANLABS-2019M1081197

PATIENT
  Age: 31 Year
  Sex: Female

DRUGS (2)
  1. FENTANYL. [Suspect]
     Active Substance: FENTANYL
     Indication: PAIN
     Dosage: 12 UG/HR, UNK ONE OF EACH PATCH (PHARMACIST ASSUMED EVERY THIRD DAY)
     Route: 065
  2. FENTANYL. [Suspect]
     Active Substance: FENTANYL
     Dosage: 25 UG/HR, UNK (ONE OF EACH PATCH (PHARMACIST ASSUMED EVERY THIRD DAY))
     Route: 065

REACTIONS (3)
  - Drug abuse [Unknown]
  - Product quality issue [Unknown]
  - Intentional product misuse [Unknown]
